FAERS Safety Report 6182362-0 (Version None)
Quarter: 2009Q2

REPORT INFORMATION
  Report Type: 
  Country: None (occurrence: None)
  Receive Date: 20090507
  Receipt Date: 20090501
  Transmission Date: 20091009
  Serious: Yes (Other)
  Sender: FDA-Public Use
  Company Number: US-SOLVAY-00209002403

PATIENT
  Age: 51 Year
  Sex: Female

DRUGS (1)
  1. ANDROGEL [Suspect]
     Indication: INTENTIONAL DRUG MISUSE
     Dosage: DAILY DOSE: 2.5 GRAM(S)
     Route: 062
     Dates: start: 20090427, end: 20090427

REACTIONS (3)
  - INTENTIONAL DRUG MISUSE [None]
  - NAUSEA [None]
  - URTICARIA [None]
